FAERS Safety Report 7073851-5 (Version None)
Quarter: 2010Q4

REPORT INFORMATION
  Report Type: 
  Country: None (occurrence: None)
  Receive Date: 20101029
  Receipt Date: 20100825
  Transmission Date: 20110411
  Serious: No
  Sender: FDA-Public Use
  Company Number: A0877680A

PATIENT
  Age: 84 Year
  Sex: Male

DRUGS (24)
  1. ADVAIR DISKUS 100/50 [Suspect]
     Indication: ASTHMA
     Dosage: 1PUFF TWICE PER DAY
     Route: 055
     Dates: start: 20080101
  2. GLUCOSAMINE + CHONDROITIN [Concomitant]
  3. ALEVE (CAPLET) [Concomitant]
  4. ZOCOR [Concomitant]
  5. ASPIRIN [Concomitant]
  6. COZAAR [Concomitant]
  7. HYDROCHLOROTHIAZIDE [Concomitant]
  8. PROVENTIL [Concomitant]
  9. MEPROBAMATE [Concomitant]
  10. OMEPRAZOLE [Concomitant]
  11. VITAMIN-MINERAL COMPOUND TAB [Concomitant]
  12. RHINOCORT [Concomitant]
  13. UNKNOWN MEDICATION [Concomitant]
  14. SAW PALMETTO [Concomitant]
  15. METROGEL [Concomitant]
  16. ZEASORB [Concomitant]
  17. PRAMOSONE [Concomitant]
  18. UNKNOWN MEDICATION [Concomitant]
  19. CENTRUM SILVER [Concomitant]
  20. CALCIUM CITRATE [Concomitant]
  21. VITAMIN D [Concomitant]
  22. POTASSIUM CHLORIDE [Concomitant]
  23. FOLIC ACID [Concomitant]
  24. THERA TEARS [Concomitant]

REACTIONS (1)
  - DYSPHONIA [None]
